FAERS Safety Report 13385241 (Version 1)
Quarter: 2017Q1

REPORT INFORMATION
  Report Type: Spontaneous
  Country: US (occurrence: US)
  Receive Date: 20170330
  Receipt Date: 20170330
  Transmission Date: 20170429
  Serious: No
  Sender: FDA-Public Use
  Company Number: None

PATIENT
  Age: 34 Year
  Sex: Female
  Weight: 99.88 kg

DRUGS (2)
  1. NEPROXIN [Concomitant]
  2. NEXPLANON [Suspect]
     Active Substance: ETONOGESTREL

REACTIONS (5)
  - Device difficult to use [None]
  - Difficulty removing drug implant [None]
  - Device breakage [None]
  - Implant site pruritus [None]
  - Oligomenorrhoea [None]

NARRATIVE: CASE EVENT DATE: 20170330
